FAERS Safety Report 13457381 (Version 1)
Quarter: 2017Q2

REPORT INFORMATION
  Report Type: Spontaneous
  Country: US (occurrence: US)
  Receive Date: 20170418
  Receipt Date: 20170418
  Transmission Date: 20170830
  Serious: Yes (Other)
  Sender: FDA-Public Use
  Company Number: None

PATIENT
  Age: 45 Year
  Sex: Female
  Weight: 77.4 kg

DRUGS (8)
  1. DHEA [Concomitant]
     Active Substance: PRASTERONE
  2. HUMALOG [Suspect]
     Active Substance: INSULIN LISPRO
     Indication: TYPE 1 DIABETES MELLITUS
     Dosage: ?          QUANTITY:1 100 U PER ML;OTHER FREQUENCY:INSULIN PUMP 24/7;OTHER ROUTE:INJECTION VIA INSULIN PUMP?
  3. C-THYROID/LEVOTHYROXINE [Concomitant]
  4. MELATONIN [Concomitant]
     Active Substance: MELATONIN
  5. ANIMAS INSULIN PUMP [Concomitant]
     Active Substance: DEVICE
  6. PREGNENOLONE [Concomitant]
     Active Substance: PREGNENOLONE
  7. DEXCOM CMG [Concomitant]
  8. INSULIN [Concomitant]
     Active Substance: INSULIN NOS

REACTIONS (7)
  - Product deposit [None]
  - Blood glucose fluctuation [None]
  - Therapy change [None]
  - Product quality issue [None]
  - Incorrect dose administered by device [None]
  - Device occlusion [None]
  - Diabetes mellitus inadequate control [None]

NARRATIVE: CASE EVENT DATE: 20170401
